FAERS Safety Report 6003585-7 (Version None)
Quarter: 2008Q4

REPORT INFORMATION
  Report Type: 
  Country: None (occurrence: None)
  Receive Date: 20081216
  Receipt Date: 20081209
  Transmission Date: 20090506
  Serious: Yes (Death)
  Sender: FDA-Public Use
  Company Number: US-CELGENEUS-163-21880-08100138

PATIENT
  Sex: Female

DRUGS (1)
  1. REVLIMID [Suspect]
     Indication: MULTIPLE MYELOMA
     Route: 048
     Dates: start: 20070510, end: 20080901

REACTIONS (8)
  - ASTHENIA [None]
  - DEATH [None]
  - DEPRESSION [None]
  - FATIGUE [None]
  - MALAISE [None]
  - PERFORMANCE STATUS DECREASED [None]
  - RESPIRATORY RATE DECREASED [None]
  - WEIGHT DECREASED [None]
